FAERS Safety Report 18733416 (Version 2)
Quarter: 2021Q1

REPORT INFORMATION
  Report Type: Report from Study
  Country: US (occurrence: US)
  Receive Date: 20210113
  Receipt Date: 20210319
  Transmission Date: 20210419
  Serious: Yes (Death, Hospitalization)
  Sender: FDA-Public Use
  Company Number: US-VIFOR (INTERNATIONAL) INC.-VIT-2021-00436

PATIENT
  Age: 57 Year
  Sex: Male
  Weight: 98.5 kg

DRUGS (19)
  1. EPOGEN [Concomitant]
     Active Substance: ERYTHROPOIETIN
     Dates: start: 20201113, end: 20201211
  2. CORTISPORIN [Concomitant]
     Active Substance: BACITRACIN ZINC\HYDROCORTISONE\NEOMYCIN SULFATE\POLYMYXIN B SULFATE
     Indication: PRURITUS
     Dates: start: 20180926, end: 20190727
  3. GABAPENTIN. [Concomitant]
     Active Substance: GABAPENTIN
     Route: 048
     Dates: start: 20180717, end: 20201211
  4. LASIX [Concomitant]
     Active Substance: FUROSEMIDE
     Route: 048
     Dates: start: 20200428, end: 20201211
  5. TUMS [Concomitant]
     Active Substance: CALCIUM CARBONATE
     Dosage: 2?3 TABLETS
     Dates: start: 20180717, end: 20200121
  6. ASPIRIN. [Concomitant]
     Active Substance: ASPIRIN
     Dates: start: 20150805, end: 20201211
  7. VELPHORO [Suspect]
     Active Substance: SUCROFERRIC OXYHYDROXIDE
     Indication: CHRONIC KIDNEY DISEASE
     Route: 048
     Dates: start: 20200121, end: 20200229
  8. VENOFER [Concomitant]
     Active Substance: IRON SUCROSE
     Route: 042
     Dates: start: 20200324, end: 20201211
  9. METOPROLOL. [Concomitant]
     Active Substance: METOPROLOL
     Route: 048
     Dates: start: 20180717, end: 20201211
  10. RENVELA [Concomitant]
     Active Substance: SEVELAMER CARBONATE
     Dates: start: 20161027, end: 20170124
  11. VELPHORO [Suspect]
     Active Substance: SUCROFERRIC OXYHYDROXIDE
     Route: 048
     Dates: start: 20200229, end: 20201211
  12. AMBIEN [Concomitant]
     Active Substance: ZOLPIDEM TARTRATE
     Route: 048
     Dates: start: 20190115, end: 20201211
  13. COZAAR [Concomitant]
     Active Substance: LOSARTAN POTASSIUM
     Dates: start: 20150831, end: 20180717
  14. HYDRALAZINE [Concomitant]
     Active Substance: HYDRALAZINE HYDROCHLORIDE
     Route: 048
     Dates: start: 20150727, end: 20180717
  15. METOPROLOL. [Concomitant]
     Active Substance: METOPROLOL
     Route: 048
     Dates: start: 20150727, end: 20180717
  16. HUMALOG [Concomitant]
     Active Substance: INSULIN LISPRO
     Dates: start: 20150727, end: 20151007
  17. HUMALOG [Concomitant]
     Active Substance: INSULIN LISPRO
     Dates: start: 20151007
  18. HUMULIN NOS [Concomitant]
     Active Substance: INSULIN HUMAN
     Dates: start: 20180717, end: 20201211
  19. RENVELA [Concomitant]
     Active Substance: SEVELAMER CARBONATE
     Dates: start: 20170124, end: 20180717

REACTIONS (2)
  - COVID-19 [Fatal]
  - Hospitalisation [Fatal]

NARRATIVE: CASE EVENT DATE: 2020
